FAERS Safety Report 11165494 (Version 1)
Quarter: 2015Q2

REPORT INFORMATION
  Report Type: Spontaneous
  Country: US (occurrence: US)
  Receive Date: 20150604
  Receipt Date: 20150604
  Transmission Date: 20150821
  Serious: Yes (Life-Threatening)
  Sender: FDA-Public Use
  Company Number: US-ELI_LILLY_AND_COMPANY-US201506000151

PATIENT
  Sex: Male

DRUGS (7)
  1. BISOPROLOL [Concomitant]
     Active Substance: BISOPROLOL
  2. ASPIRIN                            /00002701/ [Concomitant]
     Active Substance: ASPIRIN
  3. ALTACE [Concomitant]
     Active Substance: RAMIPRIL
  4. ZETIA [Concomitant]
     Active Substance: EZETIMIBE
  5. EFFIENT [Suspect]
     Active Substance: PRASUGREL HYDROCHLORIDE
     Indication: STENT PLACEMENT
     Dosage: 10 MG, QD
     Route: 048
     Dates: start: 20150319
  6. CRESTOR [Concomitant]
     Active Substance: ROSUVASTATIN CALCIUM
  7. DEXILANT [Concomitant]
     Active Substance: DEXLANSOPRAZOLE

REACTIONS (6)
  - Platelet aggregation abnormal [Unknown]
  - Peritoneal haemorrhage [Recovered/Resolved]
  - Gastrooesophageal reflux disease [Unknown]
  - Femoral artery perforation [Recovered/Resolved]
  - Cardio-respiratory arrest [Recovered/Resolved]
  - Abdominal pain upper [Unknown]
